FAERS Safety Report 18713902 (Version 2)
Quarter: 2021Q1

REPORT INFORMATION
  Report Type: Spontaneous
  Country: CA (occurrence: CA)
  Receive Date: 20210107
  Receipt Date: 20210319
  Transmission Date: 20210419
  Serious: Yes (Hospitalization)
  Sender: FDA-Public Use
  Company Number: CA-TEVA-2020-CA-1865160

PATIENT
  Age: 39 Year
  Sex: Female

DRUGS (38)
  1. METHADONE [Suspect]
     Active Substance: METHADONE HYDROCHLORIDE
     Dosage: 155 MG, GESTATIONAL AGE: 23 WEEKS
     Route: 065
  2. METHADONE [Suspect]
     Active Substance: METHADONE HYDROCHLORIDE
     Dosage: 65MG, GESTATIONAL AGE: 29 WEEKS
     Route: 065
  3. METHADONE [Suspect]
     Active Substance: METHADONE HYDROCHLORIDE
     Dosage: DAY 7, 85MG
     Route: 065
  4. MORPHINE [Suspect]
     Active Substance: MORPHINE
     Indication: DRUG USE DISORDER
     Dosage: 400 MG, GESTATIONAL AGE: 9 WEEKS; SLOW RELEASE
     Route: 048
  5. MORPHINE [Suspect]
     Active Substance: MORPHINE
     Dosage: 30?50MG ORALLY Q2 HR PRN
     Route: 048
  6. LEVAMISOLE [Suspect]
     Active Substance: LEVAMISOLE
     Indication: DRUG ABUSE
     Route: 065
  7. HYDROMORPHONE [Suspect]
     Active Substance: HYDROMORPHONE
     Dosage: 180 MILLIGRAM DAILY; 90MG
     Route: 030
  8. METHADONE [Suspect]
     Active Substance: METHADONE HYDROCHLORIDE
     Dosage: 135 MG, GESTATIONAL AGE: 19 WEEKS
     Route: 065
  9. METHADONE [Suspect]
     Active Substance: METHADONE HYDROCHLORIDE
     Dosage: 28 MG, GESTATIONAL AGE: 28 WEEKS; OVERDOSE
     Route: 065
  10. HYDROMORPHONE [Suspect]
     Active Substance: HYDROMORPHONE
     Dosage: 10MG
     Route: 030
  11. MORPHINE [Suspect]
     Active Substance: MORPHINE
     Dosage: 400 MG, GESTATIONAL AGE: 21 AND 23 WEEKS; SLOW RELEASE
     Route: 048
  12. FENTANYL. [Suspect]
     Active Substance: FENTANYL
     Indication: DRUG ABUSE
     Route: 042
  13. CARFENTANIL [Suspect]
     Active Substance: CARFENTANIL
     Indication: DRUG ABUSE
     Route: 065
  14. METHADONE [Suspect]
     Active Substance: METHADONE HYDROCHLORIDE
     Dosage: 50 MG, GESTATIONAL AGE: 26 WEEKS
     Route: 065
  15. METHADONE [Suspect]
     Active Substance: METHADONE HYDROCHLORIDE
     Dosage: DAY 1, 40 MG
     Route: 065
  16. SMOKED CANNABIS [Suspect]
     Active Substance: CANNABIS SATIVA SUBSP. INDICA TOP
     Dosage: SMOKED CANNABIS
     Route: 065
  17. MORPHINE [Suspect]
     Active Substance: MORPHINE
     Dosage: 300 MG, GESTATIONAL AGE: 19 WEEKS; SLOW RELEASE
     Route: 048
  18. METHADONE [Suspect]
     Active Substance: METHADONE HYDROCHLORIDE
     Dosage: 110 MG, GESTATIONAL AGE: 11 WEEKS
     Route: 065
  19. METHADONE [Suspect]
     Active Substance: METHADONE HYDROCHLORIDE
     Dosage: 125 MG, GESTATIONAL AGE: 15 WEEKS
     Route: 065
  20. METHADONE [Suspect]
     Active Substance: METHADONE HYDROCHLORIDE
     Dosage: 95MG, GESTATIONAL AGE: 31 WEEKS
     Route: 065
  21. HYDROMORPHONE [Suspect]
     Active Substance: HYDROMORPHONE
     Indication: DRUG USE DISORDER
     Route: 042
  22. MORPHINE [Suspect]
     Active Substance: MORPHINE
     Dosage: 100 MG, GESTATIONAL AGE: 30 WEEKS AND 31 WEEKS; 2 OVERDOSES; SLOW RELEASE
     Route: 048
  23. MORPHINE [Suspect]
     Active Substance: MORPHINE
     Dosage: 600 MG, GESTATIONAL AGE: 32?37 WEEKS; SLOW RELEASE
     Route: 048
  24. METHADONE [Suspect]
     Active Substance: METHADONE HYDROCHLORIDE
     Dosage: 80MG, GESTATIONAL AGE: 30 WEEKS; 2 OVERDOSES
     Route: 065
  25. METHADONE [Suspect]
     Active Substance: METHADONE HYDROCHLORIDE
     Dosage: DAY 3
     Route: 065
  26. MORPHINE [Suspect]
     Active Substance: MORPHINE
     Dosage: 360 MG GESTATIONAL AGE: 11 AND 15 WEEKS; SLOW RELEASE
     Route: 048
  27. METHADONE [Suspect]
     Active Substance: METHADONE HYDROCHLORIDE
     Indication: DRUG USE DISORDER
     Dosage: 60 MG, GESTATIONAL AGE: 7 WEEKS
     Route: 065
  28. METHADONE [Suspect]
     Active Substance: METHADONE HYDROCHLORIDE
     Dosage: 90 MG, GESTATIONAL AGE: 9 WEEKS
     Route: 065
  29. METHADONE [Suspect]
     Active Substance: METHADONE HYDROCHLORIDE
     Dosage: 145MG, GESTATIONAL AGE: 32?37 WEEKS
     Route: 065
  30. METHADONE [Suspect]
     Active Substance: METHADONE HYDROCHLORIDE
     Dosage: DAY 4? 6, 70 MG,
     Route: 065
  31. HYDROMORPHONE [Suspect]
     Active Substance: HYDROMORPHONE
     Dosage: 10MG
     Route: 042
  32. MORPHINE [Suspect]
     Active Substance: MORPHINE
     Dosage: 30 MG, GESTATIONAL AGE: 24 TO 29 WEEKS; SLOW RELEASE; OVERDOSES
     Route: 048
  33. LEVAMISOLE [Suspect]
     Active Substance: LEVAMISOLE
     Indication: OVERDOSE
  34. METHADONE [Suspect]
     Active Substance: METHADONE HYDROCHLORIDE
     Dosage: 145 MG, GESTATIONAL AGE: 21 WEEKS
     Route: 065
  35. METHADONE [Suspect]
     Active Substance: METHADONE HYDROCHLORIDE
     Dosage: DAY 2, 50MG
     Route: 065
  36. HYDROMORPHONE [Suspect]
     Active Substance: HYDROMORPHONE
     Dosage: 180 MILLIGRAM DAILY;
     Route: 042
  37. NALOXONE [Suspect]
     Active Substance: NALOXONE
     Indication: DRUG THERAPY
     Route: 065
  38. SMOKED CRACK COCAINE [Suspect]
     Active Substance: COCAINE
     Dosage: SMOKED CRACK COCAINE
     Route: 065

REACTIONS (9)
  - Drug withdrawal syndrome [Recovering/Resolving]
  - Overdose [Unknown]
  - Hyperhidrosis [Recovering/Resolving]
  - Drug use disorder [Recovered/Resolved]
  - Rhinorrhoea [Recovering/Resolving]
  - Restlessness [Recovering/Resolving]
  - Maternal exposure during pregnancy [Unknown]
  - Drug abuse [Unknown]
  - Off label use [Unknown]
